FAERS Safety Report 9001850 (Version 2)
Quarter: 2013Q1

REPORT INFORMATION
  Report Type: Report from Study
  Country: JP (occurrence: JP)
  Receive Date: 20130107
  Receipt Date: 20130310
  Transmission Date: 20140127
  Serious: Yes (Hospitalization)
  Sender: FDA-Public Use
  Company Number: JP-BRISTOL-MYERS SQUIBB COMPANY-12892709

PATIENT
  Age: 55 Year
  Sex: Male

DRUGS (9)
  1. STOCRIN CAPS [Suspect]
     Indication: HIV INFECTION
     Dosage: STOPPED 12MAY02, START 09APR03-09APR03,START 25APR03-21MAY04,START 04OCT04, STOP^D 14JUL05
     Route: 048
     Dates: start: 20010323, end: 20050714
  2. ZIAGEN [Suspect]
     Indication: HIV INFECTION
     Route: 048
     Dates: start: 20010406, end: 20030408
  3. VIRACEPT [Suspect]
     Indication: HIV INFECTION
     Dosage: STOPPED 21-MAY-2004, RESTARTED 04-OCT-2004
     Route: 048
     Dates: start: 20030425
  4. KALETRA [Suspect]
     Indication: HIV INFECTION
     Dosage: 6 DOSE DAILY 13-MAY-2002-15-JUL-2002; 4 DOSE DAILY 09-APR-2003-09-APR-2003.
     Route: 048
     Dates: start: 20020513, end: 20030409
  5. ASPERGILLUS ORYZAE ENZYME EXTRACT [Concomitant]
     Dates: start: 20010314, end: 20040808
  6. LAC-B [Concomitant]
     Dates: start: 20010228, end: 20020310
  7. BAKTAR [Concomitant]
     Dosage: THERAPY INTERRUPTED FROM 06-APR-2001 TO 03-APR-2001.ALSO GIVEN ON 03APR03.
     Dates: start: 20010202, end: 20030708
  8. VIREAD [Concomitant]
     Dosage: THERAPY 09-APR-2003-09-APR-2003; 25-APR-2005 TO 21-MAY-2004, RESTARTED 04-OCT-2004
     Dates: start: 20030409
  9. EPIVIR [Concomitant]
     Dates: start: 20010208, end: 20030408

REACTIONS (11)
  - Sick sinus syndrome [Recovered/Resolved]
  - Ventricular extrasystoles [Recovered/Resolved]
  - Bradycardia [Recovering/Resolving]
  - Nausea [Recovering/Resolving]
  - Vomiting [Recovering/Resolving]
  - Dizziness [Recovering/Resolving]
  - Headache [Not Recovered/Not Resolved]
  - Malaise [Unknown]
  - Palpitations [Unknown]
  - Chest discomfort [Unknown]
  - Diarrhoea [Recovered/Resolved]
